FAERS Safety Report 9571169 (Version 2)
Quarter: 2013Q4

REPORT INFORMATION
  Report Type: Spontaneous
  Country: GB (occurrence: GB)
  Receive Date: 20131001
  Receipt Date: 20131001
  Transmission Date: 20140711
  Serious: Yes (Other)
  Sender: FDA-Public Use
  Company Number: PHFR2012GB003316

PATIENT
  Sex: Male

DRUGS (5)
  1. CLOZARIL [Suspect]
     Indication: SCHIZOPHRENIA, PARANOID TYPE
     Dosage: UNK UKN, UNK
     Route: 048
     Dates: start: 20120518
  2. CLOZARIL [Suspect]
     Dosage: DOSE TITRATED
     Dates: start: 201205
  3. DIAZEPAM [Concomitant]
     Dosage: 5 MG, BID
  4. SERTRALINE [Concomitant]
     Dosage: UNK UKN, UNK
  5. AMISULPRIDE [Concomitant]
     Dosage: UNK UKN, UNK

REACTIONS (6)
  - Psoriasis [Recovering/Resolving]
  - Electrocardiogram QT prolonged [Recovered/Resolved]
  - Face oedema [Unknown]
  - Oedema [Recovering/Resolving]
  - Hypertension [Recovering/Resolving]
  - Tachycardia [Unknown]
